FAERS Safety Report 14326161 (Version 1)
Quarter: 2017Q4

REPORT INFORMATION
  Report Type: Spontaneous
  Country: HU (occurrence: HU)
  Receive Date: 20171227
  Receipt Date: 20171227
  Transmission Date: 20180321
  Serious: Yes (Hospitalization, Other)
  Sender: FDA-Public Use
  Company Number: HU-VISTAPHARM, INC.-VER201712-001486

PATIENT
  Age: 10 Day
  Sex: Female
  Weight: 1.85 kg

DRUGS (2)
  1. VALPROIC ACID. [Suspect]
     Active Substance: VALPROIC ACID
     Indication: EPILEPSY
  2. VALPROIC ACID. [Suspect]
     Active Substance: VALPROIC ACID
     Indication: MYOCLONUS

REACTIONS (5)
  - Drug level above therapeutic [Unknown]
  - Bone marrow failure [Recovering/Resolving]
  - Hyperammonaemia [Recovered/Resolved]
  - Drug-disease interaction [Unknown]
  - Blood alkaline phosphatase increased [Recovered/Resolved]
